FAERS Safety Report 18819652 (Version 1)
Quarter: 2021Q1

REPORT INFORMATION
  Report Type: Other
  Country: CA (occurrence: CA)
  Receive Date: 20210202
  Receipt Date: 20210202
  Transmission Date: 20210419
  Serious: Yes (Other)
  Sender: FDA-Public Use
  Company Number: CA-CELLTRION INC.-2021CA000907

PATIENT

DRUGS (41)
  1. ETOPOSIDE. [Suspect]
     Active Substance: ETOPOSIDE
     Dosage: 165 MG
     Route: 042
  2. DEXAMETHASONE. [Concomitant]
     Active Substance: DEXAMETHASONE
     Route: 065
  3. DIMENHYDRINATE. [Concomitant]
     Active Substance: DIMENHYDRINATE
  4. HYDROXYZINE [Concomitant]
     Active Substance: HYDROXYZINE HYDROCHLORIDE
  5. METOCLOPRAMIDE. [Concomitant]
     Active Substance: METOCLOPRAMIDE
  6. CYTARABINE INJECTION [Suspect]
     Active Substance: CYTARABINE
     Dosage: 41 MG
     Route: 042
  7. ONDANSETRON [Concomitant]
     Active Substance: ONDANSETRON
  8. PIPERACILLIN AND TAZOBACTAM [Concomitant]
     Active Substance: PIPERACILLIN SODIUM\TAZOBACTAM SODIUM
  9. POLYETHYLENE GLYCOL [Concomitant]
     Active Substance: POLYETHYLENE GLYCOLS
  10. VANCOMYCIN [Concomitant]
     Active Substance: VANCOMYCIN
  11. ETOPOSIDE. [Suspect]
     Active Substance: ETOPOSIDE
     Indication: BURKITT^S LYMPHOMA
     Dosage: 164 MG
     Route: 042
  12. METHOTREXATE. [Suspect]
     Active Substance: METHOTREXATE
     Dosage: 8.1 ML
     Route: 037
  13. HYDROCORTISONE. [Suspect]
     Active Substance: HYDROCORTISONE
     Indication: BURKITT^S LYMPHOMA
     Dosage: UNK
     Route: 037
  14. EPINEPHRINE. [Concomitant]
     Active Substance: EPINEPHRINE
  15. PENTAMIDINE ISETHIONATE INJ 300MG/VIAL BP [Concomitant]
  16. RITUXIMAB (UNKNOWN) [Suspect]
     Active Substance: RITUXIMAB
     Indication: BURKITT^S LYMPHOMA
     Dosage: 310 MG
     Route: 042
  17. CYTARABINE INJECTION [Suspect]
     Active Substance: CYTARABINE
     Indication: BURKITT^S LYMPHOMA
     Dosage: 2500 MG
     Route: 042
  18. METHOTREXATE. [Suspect]
     Active Substance: METHOTREXATE
     Indication: PRODUCT USED FOR UNKNOWN INDICATION
     Dosage: 9.6 ML
     Route: 037
  19. ACETAMINOPHEN. [Concomitant]
     Active Substance: ACETAMINOPHEN
  20. CETIRIZINE [Concomitant]
     Active Substance: CETIRIZINE HYDROCHLORIDE
  21. CLONIDINE. [Concomitant]
     Active Substance: CLONIDINE
  22. FOLIC ACID. [Concomitant]
     Active Substance: FOLIC ACID
  23. HEPARIN CALCIUM [Concomitant]
     Active Substance: HEPARIN CALCIUM
     Route: 065
  24. KETAMINE (UNKNOWN) [Concomitant]
     Active Substance: KETAMINE
  25. MEROPENEM. [Concomitant]
     Active Substance: MEROPENEM
  26. FILGRASTIM [Concomitant]
     Active Substance: FILGRASTIM
  27. FLUCONAZOLE. [Concomitant]
     Active Substance: FLUCONAZOLE
  28. RANITIDINE. [Concomitant]
     Active Substance: RANITIDINE
  29. SULFAMETHOXAZOLE AND TRIMETHOPRIM [Concomitant]
     Active Substance: SULFAMETHOXAZOLE\TRIMETHOPRIM
     Route: 065
  30. HYDROCORTISONE. [Suspect]
     Active Substance: HYDROCORTISONE
     Dosage: UNK
     Route: 037
  31. CEFTAZIDIME FOR INJECTION, USP [Concomitant]
  32. CIPROFLOXACIN. [Concomitant]
     Active Substance: CIPROFLOXACIN
  33. FUROSEMIDE. [Concomitant]
     Active Substance: FUROSEMIDE
     Route: 065
  34. HYDROMORPHONE [Concomitant]
     Active Substance: HYDROMORPHONE
  35. METRONIDAZOLE. [Concomitant]
     Active Substance: METRONIDAZOLE
  36. MYCAMINE [Concomitant]
     Active Substance: MICAFUNGIN SODIUM
  37. POTASSIUM [Concomitant]
     Active Substance: POTASSIUM
  38. RITUXIMAB (UNKNOWN) [Suspect]
     Active Substance: RITUXIMAB
     Dosage: 310 MG
     Route: 042
  39. DIPHENHYDRAMINE. [Concomitant]
     Active Substance: DIPHENHYDRAMINE
  40. MOXIFLOXACIN. [Concomitant]
     Active Substance: MOXIFLOXACIN
  41. TOBRAMYCIN. [Concomitant]
     Active Substance: TOBRAMYCIN

REACTIONS (4)
  - Transfusion [Unknown]
  - Aplastic anaemia [Unknown]
  - Overdose [Unknown]
  - Febrile bone marrow aplasia [Unknown]
